FAERS Safety Report 25587363 (Version 1)
Quarter: 2025Q3

REPORT INFORMATION
  Report Type: Spontaneous
  Country: US (occurrence: None)
  Receive Date: 20250721
  Receipt Date: 20250721
  Transmission Date: 20251020
  Serious: Yes (Disabling)
  Sender: FDA-CTU
  Company Number: None

PATIENT
  Age: 34 Year
  Sex: Female
  Weight: 76.5 kg

DRUGS (26)
  1. WEGOVY [Suspect]
     Active Substance: SEMAGLUTIDE
     Indication: Weight decreased
     Route: 050
  2. ORACEA [Concomitant]
     Active Substance: DOXYCYCLINE
  3. LINZESS [Concomitant]
     Active Substance: LINACLOTIDE
  4. PROPRANOLOL [Concomitant]
     Active Substance: PROPRANOLOL HYDROCHLORIDE
  5. BUPROPION [Concomitant]
     Active Substance: BUPROPION
  6. VYVANSE [Concomitant]
     Active Substance: LISDEXAMFETAMINE DIMESYLATE
  7. LEVOTHYROXINE [Concomitant]
     Active Substance: LEVOTHYROXINE
  8. DESVENLAFAXINE [Concomitant]
     Active Substance: DESVENLAFAXINE
  9. OMEPRAZOLE [Concomitant]
     Active Substance: OMEPRAZOLE
  10. METFORMIN [Concomitant]
     Active Substance: METFORMIN HYDROCHLORIDE
  11. PRAZOSIN [Concomitant]
     Active Substance: PRAZOSIN
  12. LO LOESTRIN FE [Concomitant]
     Active Substance: ETHINYL ESTRADIOL\NORETHINDRONE ACETATE
  13. WEGOVY [Concomitant]
     Active Substance: SEMAGLUTIDE
  14. GUANFACINE [Concomitant]
     Active Substance: GUANFACINE
  15. busprirone [Concomitant]
  16. SUMATRIPTAN [Concomitant]
     Active Substance: SUMATRIPTAN
  17. extra dose propranolol [Concomitant]
  18. ondansatron [Concomitant]
  19. ALBUTEROL [Concomitant]
     Active Substance: ALBUTEROL
  20. SALT [Concomitant]
     Active Substance: SODIUM CHLORIDE
  21. DIETARY SUPPLEMENT [Concomitant]
     Active Substance: DIETARY SUPPLEMENT
  22. PROBIOTICS NOS [Concomitant]
     Active Substance: PROBIOTICS NOS
  23. LEVOMEFOLIC ACID [Concomitant]
     Active Substance: LEVOMEFOLIC ACID
  24. VITAMINS [Concomitant]
     Active Substance: VITAMINS
  25. TYLENOL [Concomitant]
     Active Substance: ACETAMINOPHEN
  26. IBUPROFEN [Concomitant]
     Active Substance: IBUPROFEN

REACTIONS (10)
  - Hypophagia [None]
  - Drug intolerance [None]
  - Pain [None]
  - Allodynia [None]
  - Skin burning sensation [None]
  - Sensitive skin [None]
  - Nausea [None]
  - Alanine aminotransferase increased [None]
  - Influenza like illness [None]
  - Abnormal loss of weight [None]

NARRATIVE: CASE EVENT DATE: 20250714
